FAERS Safety Report 8995392 (Version 2)
Quarter: 2013Q1

REPORT INFORMATION
  Report Type: Spontaneous
  Country: US (occurrence: US)
  Receive Date: 20130103
  Receipt Date: 20130118
  Transmission Date: 20140127
  Serious: No
  Sender: FDA-Public Use
  Company Number: US-PFIZER INC-2013001606

PATIENT
  Age: 61 Year
  Sex: Female
  Weight: 74.83 kg

DRUGS (2)
  1. ALDACTAZIDE [Suspect]
     Indication: MIGRAINE
     Dosage: 25/25 MG, 1X/DAY
     Route: 048
     Dates: end: 201212
  2. XANAX [Suspect]
     Indication: MIGRAINE
     Dosage: UNK, 1X/DAY

REACTIONS (3)
  - Off label use [Unknown]
  - Therapeutic response unexpected [Unknown]
  - Headache [Unknown]
